FAERS Safety Report 15531293 (Version 2)
Quarter: 2018Q4

REPORT INFORMATION
  Report Type: Spontaneous
  Country: FI (occurrence: FI)
  Receive Date: 20181019
  Receipt Date: 20181206
  Transmission Date: 20190205
  Serious: Yes (Death, Other)
  Sender: FDA-Public Use
  Company Number: FI-BRISTOL-MYERS SQUIBB COMPANY-BMS-2018-097513

PATIENT
  Sex: Female
  Weight: 90 kg

DRUGS (1)
  1. ELIQUIS [Suspect]
     Active Substance: APIXABAN
     Indication: PRODUCT USED FOR UNKNOWN INDICATION
     Dosage: 5 MG, UNK
     Route: 065
     Dates: start: 201310

REACTIONS (6)
  - Death [Fatal]
  - Herpes zoster [Unknown]
  - Rectal haemorrhage [Unknown]
  - Erysipelas [Unknown]
  - Gout [Unknown]
  - Cerebrovascular accident [Unknown]
